FAERS Safety Report 4641502-2 (Version None)
Quarter: 2005Q2

REPORT INFORMATION
  Report Type: 
  Country: None (occurrence: None)
  Receive Date: 20050421
  Receipt Date: 20050330
  Transmission Date: 20051028
  Serious: Yes (Other)
  Sender: FDA-Public Use
  Company Number: ES-GLAXOSMITHKLINE-B0377189A

PATIENT
  Age: 57 Year
  Sex: Female

DRUGS (1)
  1. REQUIP [Suspect]
     Indication: PARKINSON'S DISEASE
     Dosage: 15MG PER DAY
     Route: 065

REACTIONS (3)
  - ARTERIOPATHIC DISEASE [None]
  - CYANOSIS [None]
  - SKIN DISCOLOURATION [None]
